FAERS Safety Report 9053561 (Version 1)
Quarter: 2013Q1

REPORT INFORMATION
  Report Type: Spontaneous
  Country: US (occurrence: None)
  Receive Date: 20130201
  Receipt Date: 20130201
  Transmission Date: 20140127
  Serious: Yes (Hospitalization)
  Sender: FDA-Public Use
  Company Number: None

PATIENT
  Age: 32 Year
  Sex: Female
  Weight: 46 kg

DRUGS (2)
  1. LYMPHAZURIN [Suspect]
     Dates: start: 20130111, end: 20130111
  2. PROPOFOL [Concomitant]

REACTIONS (2)
  - Blood pressure systolic decreased [None]
  - Hypotension [None]
